FAERS Safety Report 9876444 (Version 2)
Quarter: 2014Q1

REPORT INFORMATION
  Report Type: Other
  Country: US (occurrence: US)
  Receive Date: 20140206
  Receipt Date: 20140206
  Transmission Date: 20141002
  Serious: No
  Sender: FDA-Public Use
  Company Number: US-ACORDA-ACO_38140_2013

PATIENT
  Age: 75 Year
  Sex: Female
  Weight: 54.42 kg

DRUGS (5)
  1. AMPYRA [Suspect]
     Indication: GAIT DISTURBANCE
     Dosage: 10 MG, BID
     Route: 048
     Dates: start: 20130819, end: 20130821
  2. EVISTA [Concomitant]
     Indication: OSTEOPOROSIS
     Dosage: UNK
  3. DIGOXIN [Concomitant]
     Indication: CARDIAC DISORDER
     Dosage: UNK
  4. VESICARE [Concomitant]
     Indication: PRODUCT USED FOR UNKNOWN INDICATION
     Dosage: UNK
  5. BYSTOLIC [Concomitant]
     Indication: PRODUCT USED FOR UNKNOWN INDICATION
     Dosage: UNK

REACTIONS (6)
  - Diplopia [Recovered/Resolved]
  - Abdominal discomfort [Recovered/Resolved]
  - Feeling abnormal [Recovered/Resolved]
  - Malaise [Unknown]
  - Vision blurred [Recovered/Resolved]
  - Dizziness [Recovered/Resolved]
